FAERS Safety Report 19139715 (Version 1)
Quarter: 2021Q2

REPORT INFORMATION
  Report Type: Spontaneous
  Country: US (occurrence: US)
  Receive Date: 20210415
  Receipt Date: 20210415
  Transmission Date: 20210717
  Serious: Yes (Hospitalization)
  Sender: FDA-Public Use
  Company Number: None

PATIENT
  Sex: Female
  Weight: 86 kg

DRUGS (2)
  1. CYTARABINE. [Suspect]
     Active Substance: CYTARABINE
  2. DAUNORUBICIN [Concomitant]
     Active Substance: DAUNORUBICIN

REACTIONS (6)
  - Cytopenia [None]
  - Blood urine present [None]
  - Abdominal tenderness [None]
  - Escherichia bacteraemia [None]
  - Fatigue [None]
  - Pollakiuria [None]

NARRATIVE: CASE EVENT DATE: 20210410
